FAERS Safety Report 12380065 (Version 1)
Quarter: 2016Q2

REPORT INFORMATION
  Report Type: Spontaneous
  Country: US (occurrence: None)
  Receive Date: 20160516
  Receipt Date: 20160516
  Transmission Date: 20160815
  Serious: No
  Sender: FDA-Public Use
  Company Number: None

PATIENT
  Age: 55 Year
  Sex: Male

DRUGS (1)
  1. HARVONI [Suspect]
     Active Substance: LEDIPASVIR\SOFOSBUVIR
     Dosage: HARVONI 90/400 DAILY ORAL
     Route: 048

REACTIONS (2)
  - Epistaxis [None]
  - Dizziness [None]

NARRATIVE: CASE EVENT DATE: 20160513
